FAERS Safety Report 17732666 (Version 1)
Quarter: 2020Q2

REPORT INFORMATION
  Report Type: Spontaneous
  Country: GB (occurrence: GB)
  Receive Date: 20200501
  Receipt Date: 20200501
  Transmission Date: 20200714
  Serious: Yes (Other)
  Sender: FDA-Public Use
  Company Number: GB-PFIZER INC-2020170873

PATIENT
  Age: 3 Week
  Sex: Female

DRUGS (11)
  1. ATRACURIUM BESILATE [Interacting]
     Active Substance: ATRACURIUM BESYLATE
     Dosage: 0.25 MG
  2. SODIUM CHLORIDE. [Concomitant]
     Active Substance: SODIUM CHLORIDE
     Dosage: UNK
     Route: 042
  3. HALOTHANE. [Concomitant]
     Active Substance: HALOTHANE
     Indication: ANAESTHESIA
     Dosage: UNK (O.5% HALOTHANE IN OXYGEN)
  4. ATRACURIUM BESILATE [Suspect]
     Active Substance: ATRACURIUM BESYLATE
     Indication: ANAESTHESIA
     Dosage: 1.3 MG (1 MG/ML,  (0.5 MG/KG, 1.3 MG) (APPROXIMATELY 30 SECONDS)
  5. ATROPINE. [Concomitant]
     Active Substance: ATROPINE
     Dosage: 60 UNK
     Route: 042
  6. NEOSTIGMINE. [Concomitant]
     Active Substance: NEOSTIGMINE METHYLSULFATE
     Dosage: 120 UG
     Route: 042
  7. ATROPINE. [Concomitant]
     Active Substance: ATROPINE
     Indication: PREMEDICATION
     Dosage: 50 UG (2 HOURS PRE-OPERATIVELY)
     Route: 030
  8. 5% DEXTROSE + K NA [Concomitant]
     Dosage: UNK
     Route: 042
  9. NITROUS OXIDE. [Concomitant]
     Active Substance: NITROUS OXIDE
     Indication: ANAESTHESIA
     Dosage: UNK (60% NITROUS OXIDE IN OXYGEN)
  10. THIOPENTONE SODIUM [Interacting]
     Active Substance: THIOPENTAL SODIUM
     Indication: ANAESTHESIA
     Dosage: 15 MG (5.75 MG/KG BODY WEIGHT)
     Route: 042
  11. 5% DEXTROSE + K NA [Concomitant]
     Dosage: 50 ML
     Route: 042

REACTIONS (5)
  - Epiglottic oedema [Recovered/Resolved]
  - Cyanosis neonatal [Recovered/Resolved]
  - Drug interaction [Unknown]
  - Anaphylactoid reaction [Recovered/Resolved]
  - Eyelid oedema [Recovered/Resolved]
